FAERS Safety Report 20115414 (Version 1)
Quarter: 2021Q4

REPORT INFORMATION
  Report Type: Other
  Country: CA (occurrence: None)
  Receive Date: 20211126
  Receipt Date: 20211126
  Transmission Date: 20220303
  Serious: Yes (Hospitalization, Other)
  Sender: FDA-Public Use
  Company Number: CA-Inventia-000157

PATIENT
  Sex: Male

DRUGS (2)
  1. PALIPERIDONE [Suspect]
     Active Substance: PALIPERIDONE
     Indication: Schizoaffective disorder
     Dosage: 100 MG LONG ACTING INJECTION EVERY 4 WEEKS
  2. VALPROIC ACID [Concomitant]
     Active Substance: VALPROIC ACID
     Indication: Schizoaffective disorder
     Dosage: 1000 MG ORALLY DAILY
     Route: 048

REACTIONS (4)
  - Substance-induced psychotic disorder [Recovered/Resolved]
  - Acute psychosis [Recovered/Resolved]
  - Aggression [Recovered/Resolved]
  - Intentional product use issue [Unknown]
